FAERS Safety Report 6692497-1 (Version None)
Quarter: 2010Q2

REPORT INFORMATION
  Report Type: 
  Country: None (occurrence: None)
  Receive Date: 20100422
  Receipt Date: 20100414
  Transmission Date: 20101027
  Serious: Yes (Hospitalization)
  Sender: FDA-Public Use
  Company Number: B0624816A

PATIENT
  Age: 44 Year
  Sex: Female

DRUGS (2)
  1. TYKERB [Suspect]
     Indication: BREAST CANCER
     Dosage: 1250MG PER DAY
     Route: 048
     Dates: start: 20091210, end: 20091201
  2. XELODA [Concomitant]
     Dosage: 1000MG PER DAY
     Route: 048
     Dates: start: 20091210, end: 20091201

REACTIONS (1)
  - PYREXIA [None]
